FAERS Safety Report 5838099-8 (Version None)
Quarter: 2008Q3

REPORT INFORMATION
  Report Type: 
  Country: None (occurrence: None)
  Receive Date: 20080808
  Receipt Date: 20080730
  Transmission Date: 20090109
  Serious: Yes (Hospitalization, Disabling)
  Sender: FDA-Public Use
  Company Number: CA-JNJFOC-20080206728

PATIENT
  Sex: Male

DRUGS (7)
  1. TMC125 [Suspect]
     Route: 048
  2. TMC125 [Suspect]
     Indication: HIV INFECTION
     Dosage: TEMPORARY STOP
     Route: 048
  3. PREZISTA [Concomitant]
     Indication: HIV INFECTION
     Route: 048
  4. TRIZIVIR [Concomitant]
     Indication: HIV INFECTION
     Route: 048
  5. NORVIR [Concomitant]
     Indication: HIV INFECTION
     Route: 048
  6. FUZEON [Concomitant]
     Indication: HIV INFECTION
     Route: 058
  7. RALTEGRAVIR [Concomitant]
     Indication: HIV INFECTION
     Route: 048

REACTIONS (1)
  - ISCHAEMIC STROKE [None]
